FAERS Safety Report 5497017-5 (Version None)
Quarter: 2007Q4

REPORT INFORMATION
  Report Type: 
  Country: None (occurrence: None)
  Receive Date: 20071018
  Receipt Date: 20070723
  Transmission Date: 20080405
  Serious: Yes (Other)
  Sender: FDA-Public Use
  Company Number: 2007051937

PATIENT
  Age: 49 Year
  Sex: Female

DRUGS (7)
  1. NEURONTIN [Suspect]
     Indication: CONVULSION
     Dosage: 600 MG (300 MG, 2 IN 1 D)
  2. LAMICTAL [Suspect]
     Indication: CONVULSION
     Dosage: ORAL
     Route: 048
     Dates: start: 20061201, end: 20070301
  3. LORAZEPAM [Concomitant]
  4. LUNESTA [Concomitant]
  5. IBUPROFEN [Concomitant]
  6. ASPIRIN [Concomitant]
  7. MULTIVITAMIN [Concomitant]

REACTIONS (1)
  - MOUTH ULCERATION [None]
